FAERS Safety Report 5310587-2 (Version None)
Quarter: 2007Q1

REPORT INFORMATION
  Report Type: 
  Country: None (occurrence: None)
  Receive Date: 20070201
  Receipt Date: 20061023
  Transmission Date: 20070707
  Serious: No
  Sender: FDA-Public Use
  Company Number: 258233

PATIENT
  Age: 78 Year
  Sex: Female
  Weight: 70.7 kg

DRUGS (3)
  1. LEVEMIR [Suspect]
     Indication: DIABETES MELLITUS INSULIN-DEPENDENT
     Dosage: SUBCUTANEOUS
     Route: 058
     Dates: start: 20061018
  2. METFORMIN HCL [Concomitant]
  3. NOVOFINE(R) 30 (NEEDLE) [Concomitant]

REACTIONS (1)
  - BLOOD GLUCOSE INCREASED [None]
